FAERS Safety Report 14393814 (Version 1)
Quarter: 2018Q1

REPORT INFORMATION
  Report Type: Spontaneous
  Country: US (occurrence: US)
  Receive Date: 20180113
  Receipt Date: 20180113
  Transmission Date: 20180509
  Serious: Yes (Other)
  Sender: FDA-Public Use
  Company Number: None

PATIENT
  Age: 76 Year
  Sex: Male

DRUGS (1)
  1. TASIGNA [Suspect]
     Active Substance: NILOTINIB
     Indication: RHEUMATOID ARTHRITIS
     Route: 048
     Dates: start: 20170803

REACTIONS (1)
  - Myalgia [None]

NARRATIVE: CASE EVENT DATE: 20171101
